FAERS Safety Report 20671664 (Version 6)
Quarter: 2022Q2

REPORT INFORMATION
  Report Type: Spontaneous
  Country: US (occurrence: US)
  Receive Date: 20220405
  Receipt Date: 20220617
  Transmission Date: 20220721
  Serious: Yes (Hospitalization, Other)
  Sender: FDA-Public Use
  Company Number: US-GLAXOSMITHKLINE-US2022057989

PATIENT

DRUGS (3)
  1. ZEJULA [Suspect]
     Active Substance: NIRAPARIB
     Indication: Fallopian tube cancer
     Dosage: 200 MG, QD
     Route: 048
     Dates: start: 20220328, end: 20220412
  2. ZEJULA [Suspect]
     Active Substance: NIRAPARIB
     Dosage: 100 MG, QD
     Dates: start: 20220509
  3. ZEJULA [Suspect]
     Active Substance: NIRAPARIB
     Dosage: 100 MG, QD
     Route: 048

REACTIONS (27)
  - Type 2 diabetes mellitus [Unknown]
  - Platelet count decreased [Not Recovered/Not Resolved]
  - Nausea [Unknown]
  - Abnormal dreams [Unknown]
  - Middle insomnia [Unknown]
  - Blood pressure increased [Unknown]
  - Tremor [Unknown]
  - Restless legs syndrome [Unknown]
  - Head discomfort [Unknown]
  - Palpitations [Unknown]
  - Constipation [Unknown]
  - Liver disorder [Unknown]
  - Blood insulin abnormal [Unknown]
  - Fatigue [Not Recovered/Not Resolved]
  - Petechiae [Unknown]
  - Sleep disorder [Unknown]
  - Cough [Unknown]
  - Oropharyngeal pain [Unknown]
  - Pyrexia [Unknown]
  - COVID-19 [Unknown]
  - Carbohydrate antigen 125 increased [Unknown]
  - Pain [Unknown]
  - Full blood count abnormal [Unknown]
  - Red blood cell count abnormal [Unknown]
  - Computerised tomogram abnormal [Unknown]
  - Asthenia [Recovering/Resolving]
  - Off label use [Unknown]

NARRATIVE: CASE EVENT DATE: 20220607
